FAERS Safety Report 21285596 (Version 1)
Quarter: 2022Q3

REPORT INFORMATION
  Report Type: Spontaneous
  Country: IT (occurrence: IT)
  Receive Date: 20220902
  Receipt Date: 20220902
  Transmission Date: 20221027
  Serious: Yes (Other)
  Sender: FDA-Public Use
  Company Number: IT-002147023-NVSC2022IT185420

PATIENT
  Age: 76 Year
  Sex: Male

DRUGS (1)
  1. DASATINIB [Suspect]
     Active Substance: DASATINIB
     Indication: Chronic myeloid leukaemia
     Dosage: UNK
     Route: 065
     Dates: start: 200803, end: 200811

REACTIONS (6)
  - Dyspnoea [Unknown]
  - Dysphagia [Unknown]
  - Fluid retention [Unknown]
  - Laryngeal oedema [Unknown]
  - Weight increased [Unknown]
  - Drug intolerance [Unknown]
